FAERS Safety Report 15263501 (Version 4)
Quarter: 2018Q4

REPORT INFORMATION
  Report Type: Report from Study
  Country: None (occurrence: US)
  Receive Date: 20180810
  Receipt Date: 20181120
  Transmission Date: 20190204
  Serious: Yes (Hospitalization, Other)
  Sender: FDA-Public Use
  Company Number: US-ABBVIE-18K-163-2323805-00

PATIENT
  Age: 65 Year
  Sex: Female
  Weight: 56.75 kg

DRUGS (10)
  1. LODIPINE [Concomitant]
     Indication: HYPERTENSION
  2. HUMIRA [Suspect]
     Active Substance: ADALIMUMAB
     Route: 058
     Dates: start: 20180320
  3. FENOFIBRATE. [Concomitant]
     Active Substance: FENOFIBRATE
     Indication: BLOOD TRIGLYCERIDES INCREASED
  4. VITAMIN B12 [Concomitant]
     Active Substance: CYANOCOBALAMIN
     Indication: VITAMIN SUPPLEMENTATION
  5. IMURAN [Concomitant]
     Active Substance: AZATHIOPRINE
     Indication: CROHN^S DISEASE
  6. DICLOFENAC [Concomitant]
     Active Substance: DICLOFENAC
     Indication: DIARRHOEA
  7. LISINOPRIL. [Concomitant]
     Active Substance: LISINOPRIL
     Indication: HYPERTENSION
  8. HUMIRA [Suspect]
     Active Substance: ADALIMUMAB
     Indication: CROHN^S DISEASE
     Route: 058
     Dates: start: 20161116, end: 20180220
  9. SYNTHROID [Concomitant]
     Active Substance: LEVOTHYROXINE SODIUM
     Indication: HYPOTHYROIDISM
  10. FLAGYL [Concomitant]
     Active Substance: METRONIDAZOLE\METRONIDAZOLE HYDROCHLORIDE
     Indication: GASTROINTESTINAL BACTERIAL INFECTION

REACTIONS (25)
  - Fatigue [Unknown]
  - Mobility decreased [Recovering/Resolving]
  - Dysphonia [Recovering/Resolving]
  - Muscle spasms [Not Recovered/Not Resolved]
  - Dehydration [Not Recovered/Not Resolved]
  - Abdominal pain upper [Recovering/Resolving]
  - Dyspnoea [Unknown]
  - Meniscus injury [Recovered/Resolved]
  - Hypophagia [Not Recovered/Not Resolved]
  - Weight decreased [Unknown]
  - Gastrointestinal tract irritation [Not Recovered/Not Resolved]
  - Diarrhoea [Not Recovered/Not Resolved]
  - Unevaluable event [Recovered/Resolved]
  - Skin turgor decreased [Not Recovered/Not Resolved]
  - Malaise [Unknown]
  - Fistula [Not Recovered/Not Resolved]
  - Haematochezia [Recovering/Resolving]
  - Product dispensing error [Unknown]
  - Fall [Recovered/Resolved]
  - Arthralgia [Recovered/Resolved]
  - Anal incontinence [Not Recovered/Not Resolved]
  - Speech disorder [Recovering/Resolving]
  - Intestinal mucosal hypertrophy [Not Recovered/Not Resolved]
  - Crohn^s disease [Not Recovered/Not Resolved]
  - Drug ineffective [Unknown]

NARRATIVE: CASE EVENT DATE: 2017
